FAERS Safety Report 15044571 (Version 1)
Quarter: 2018Q2

REPORT INFORMATION
  Report Type: Spontaneous
  Country: US (occurrence: US)
  Receive Date: 20180621
  Receipt Date: 20180621
  Transmission Date: 20180711
  Serious: Yes (Other)
  Sender: FDA-Public Use
  Company Number: US-OTSUKA-12291282

PATIENT

DRUGS (1)
  1. ABILIFY [Suspect]
     Active Substance: ARIPIPRAZOLE
     Dosage: NO INFORMATION PROVIDED

REACTIONS (3)
  - Liver function test abnormal [Unknown]
  - Hepatic enzyme increased [Unknown]
  - Jaundice [Unknown]
